FAERS Safety Report 6489635-2 (Version None)
Quarter: 2009Q4

REPORT INFORMATION
  Report Type: 
  Country: None (occurrence: None)
  Receive Date: 20091207
  Receipt Date: 20091123
  Transmission Date: 20100525
  Serious: Yes (Other)
  Sender: FDA-Public Use
  Company Number: 2009AC000407

PATIENT
  Age: 70 Year
  Sex: Male

DRUGS (16)
  1. DIGOXIN [Suspect]
     Dosage: 0.125 MG; PO
     Route: 048
  2. BYETTA [Concomitant]
  3. NOVOFINE [Concomitant]
  4. HUMULIN R [Concomitant]
  5. INSULIN [Concomitant]
  6. CARVEDILOL [Concomitant]
  7. COREG [Concomitant]
  8. FUROSEMIDE [Concomitant]
  9. ZOCOR [Concomitant]
  10. SIMVASTATIN [Concomitant]
  11. HYZAAR [Concomitant]
  12. VIGAMOX [Concomitant]
  13. PREDNISOLONE [Concomitant]
  14. OFLOXACIN [Concomitant]
  15. METFORMIN HCL [Concomitant]
  16. AMPICILLIN [Concomitant]

REACTIONS (13)
  - CARDIOMEGALY [None]
  - CATARACT [None]
  - CHEST X-RAY ABNORMAL [None]
  - DIABETIC NEUROPATHY [None]
  - GAIT DISTURBANCE [None]
  - HYPOAESTHESIA [None]
  - JOINT RANGE OF MOTION DECREASED [None]
  - OBESITY [None]
  - OEDEMA PERIPHERAL [None]
  - PARAESTHESIA [None]
  - STASIS DERMATITIS [None]
  - STRABISMUS [None]
  - VISUAL ACUITY REDUCED [None]
